FAERS Safety Report 19408169 (Version 1)
Quarter: 2021Q2

REPORT INFORMATION
  Report Type: Spontaneous
  Country: US (occurrence: US)
  Receive Date: 20210611
  Receipt Date: 20210611
  Transmission Date: 20210717
  Serious: Yes (Hospitalization)
  Sender: FDA-Public Use
  Company Number: US-PFIZER INC-2021599542

PATIENT
  Age: 65 Year
  Sex: Female
  Weight: 73.94 kg

DRUGS (9)
  1. DESVENLAFAXINE SUCCINATE MONOHYDRATE [Suspect]
     Active Substance: DESVENLAFAXINE SUCCINATE
     Dosage: 75 MG, UNK
  2. DESVENLAFAXINE SUCCINATE MONOHYDRATE [Suspect]
     Active Substance: DESVENLAFAXINE SUCCINATE
     Indication: ANXIETY
     Dosage: 50 MG, UNK
     Dates: start: 202004, end: 202101
  3. DESVENLAFAXINE SUCCINATE MONOHYDRATE [Suspect]
     Active Substance: DESVENLAFAXINE SUCCINATE
     Dosage: 25 MG
  4. DESVENLAFAXINE SUCCINATE MONOHYDRATE [Suspect]
     Active Substance: DESVENLAFAXINE SUCCINATE
     Dosage: 25 MG, ONCE A DAY
     Dates: start: 202104
  5. DESVENLAFAXINE SUCCINATE MONOHYDRATE [Suspect]
     Active Substance: DESVENLAFAXINE SUCCINATE
     Dosage: 50 MG, ONCE A DAY
     Route: 048
     Dates: start: 202104
  6. HYDROXYCHLOROQUINE [Concomitant]
     Active Substance: HYDROXYCHLOROQUINE
     Dosage: UNK
     Dates: start: 202006
  7. PRILOSEC [Concomitant]
     Active Substance: OMEPRAZOLE MAGNESIUM
     Dosage: UNK
  8. XANAX [Concomitant]
     Active Substance: ALPRAZOLAM
     Dosage: 1 MG
  9. FAMOTIDINE. [Concomitant]
     Active Substance: FAMOTIDINE
     Dosage: 10 MG

REACTIONS (22)
  - Depression [Unknown]
  - Ear pain [Recovered/Resolved]
  - Oropharyngeal pain [Unknown]
  - Oesophageal pain [Unknown]
  - Illness [Unknown]
  - Rhinorrhoea [Unknown]
  - Headache [Recovered/Resolved]
  - Dyspepsia [Unknown]
  - Throat irritation [Unknown]
  - Sinus disorder [Unknown]
  - Panic attack [Not Recovered/Not Resolved]
  - Agoraphobia [Unknown]
  - Rhinalgia [Unknown]
  - Dysphonia [Unknown]
  - Weight decreased [Unknown]
  - Blood sodium decreased [Unknown]
  - Lip swelling [Recovered/Resolved]
  - Nervousness [Unknown]
  - Oral discomfort [Unknown]
  - Off label use [Unknown]
  - Drug ineffective [Unknown]
  - Intentional dose omission [Unknown]

NARRATIVE: CASE EVENT DATE: 20210119
